FAERS Safety Report 9025580 (Version 2)
Quarter: 2013Q1

REPORT INFORMATION
  Report Type: Spontaneous
  Country: BE (occurrence: BE)
  Receive Date: 20130122
  Receipt Date: 20130123
  Transmission Date: 20140127
  Serious: Yes (Other)
  Sender: FDA-Public Use
  Company Number: BE-ROCHE-1181441

PATIENT
  Age: 53 Year
  Sex: Female
  Weight: 61 kg

DRUGS (11)
  1. HERCEPTIN [Suspect]
     Indication: BREAST CANCER METASTATIC
     Route: 065
     Dates: start: 20100216
  2. HERCEPTIN [Suspect]
     Route: 065
     Dates: start: 20100223
  3. HERCEPTIN [Suspect]
     Route: 065
     Dates: start: 20100615
  4. HERCEPTIN [Suspect]
     Route: 065
     Dates: start: 20120605
  5. HERCEPTIN [Suspect]
     Route: 065
     Dates: start: 20120703
  6. XELODA [Suspect]
     Indication: BREAST CANCER METASTATIC
     Route: 065
  7. TAXOL [Suspect]
     Indication: BREAST CANCER METASTATIC
     Route: 065
     Dates: start: 20100216
  8. TYVERB [Suspect]
     Indication: BREAST CANCER METASTATIC
     Route: 065
  9. ZOMETA [Suspect]
     Indication: BREAST CANCER METASTATIC
     Route: 065
  10. AROMASIN [Concomitant]
  11. NAVELBINE [Concomitant]

REACTIONS (3)
  - Metastases to bone [Unknown]
  - Anaemia [Unknown]
  - Thrombocytopenia [Unknown]
